FAERS Safety Report 4824771-5 (Version None)
Quarter: 2005Q4

REPORT INFORMATION
  Report Type: 
  Country: None (occurrence: None)
  Receive Date: 20051108
  Receipt Date: 20051025
  Transmission Date: 20060501
  Serious: Yes (Death)
  Sender: FDA-Public Use
  Company Number: CA_051008939

PATIENT
  Age: 55 Year
  Sex: Male

DRUGS (3)
  1. OLANZAPINE [Suspect]
     Dates: end: 20050401
  2. QUETIAPINE FUMARATE [Concomitant]
  3. LITHIUM [Concomitant]

REACTIONS (1)
  - DEATH [None]
